FAERS Safety Report 4405422-0 (Version None)
Quarter: 2004Q3

REPORT INFORMATION
  Report Type: 
  Country: None (occurrence: None)
  Receive Date: 20040723
  Receipt Date: 20030819
  Transmission Date: 20050211
  Serious: No
  Sender: FDA-Public Use
  Company Number: US-GLAXOSMITHKLINE-A0422638A

PATIENT
  Age: 75 Year
  Sex: Female

DRUGS (2)
  1. AVANDIA [Suspect]
     Dosage: 2MG UNKNOWN
     Route: 048
  2. GLUCOTROL [Concomitant]

REACTIONS (2)
  - COUGH [None]
  - DYSPNOEA [None]
